FAERS Safety Report 8916997 (Version 1)
Quarter: 2012Q4

REPORT INFORMATION
  Report Type: 
  Country: JP (occurrence: JP)
  Receive Date: 20121120
  Receipt Date: 20121120
  Transmission Date: 20130627
  Serious: Yes (Other)
  Sender: FDA-Public Use
  Company Number: JP-009507513-1211JPN006589

PATIENT
  Age: 74 Year
  Sex: Female

DRUGS (1)
  1. BONALON [Suspect]
     Dosage: 35 mg, qw
     Route: 048
     Dates: start: 200608, end: 20091111

REACTIONS (2)
  - Osteonecrosis of jaw [Recovering/Resolving]
  - Osteomyelitis [Recovering/Resolving]
